FAERS Safety Report 4354511-8 (Version None)
Quarter: 2004Q2

REPORT INFORMATION
  Report Type: 
  Country: None (occurrence: None)
  Receive Date: 20040503
  Receipt Date: 20040323
  Transmission Date: 20050107
  Serious: Yes (Hospitalization, Other)
  Sender: FDA-Public Use
  Company Number: KII-2004-0009846

PATIENT
  Age: 31 Year
  Sex: Male

DRUGS (5)
  1. MORPHINE SULFATE [Suspect]
  2. FENTANYL [Suspect]
  3. ACETAMINOPHEN W/OXYCODONE(OXYCODONE HYDROCHLORIDE, PARACETAMOL) [Suspect]
  4. BENZODIAZEPINE DERIVATIVES (BENZODIAZEPINE DERIVATIVES) [Suspect]
  5. COCAINE(COCAINE) [Suspect]

REACTIONS (37)
  - ACTIVATED PARTIAL THROMBOPLASTIN TIME PROLONGED [None]
  - ALANINE AMINOTRANSFERASE INCREASED [None]
  - ASPARTATE AMINOTRANSFERASE INCREASED [None]
  - BAND NEUTROPHIL COUNT INCREASED [None]
  - BLOOD ALBUMIN DECREASED [None]
  - BLOOD CALCIUM DECREASED [None]
  - BLOOD CHLORIDE ABNORMAL [None]
  - BLOOD CHLORIDE INCREASED [None]
  - BLOOD CREATINE PHOSPHOKINASE INCREASED [None]
  - BLOOD CREATINE PHOSPHOKINASE MB INCREASED [None]
  - BLOOD CREATININE INCREASED [None]
  - BLOOD PH DECREASED [None]
  - BLOOD POTASSIUM INCREASED [None]
  - BLOOD UREA INCREASED [None]
  - BODY TEMPERATURE DECREASED [None]
  - CARDIAC ENZYMES INCREASED [None]
  - COMA [None]
  - CONVULSION [None]
  - GASTROINTESTINAL HAEMORRHAGE [None]
  - GASTROINTESTINAL ISCHAEMIA [None]
  - HAEMATOCHEZIA [None]
  - HAEMATOCRIT ABNORMAL [None]
  - HAEMOGLOBIN ABNORMAL [None]
  - HYPOTENSION [None]
  - INTERNATIONAL NORMALISED RATIO INCREASED [None]
  - LIVER FUNCTION TEST ABNORMAL [None]
  - METABOLIC ACIDOSIS [None]
  - MIOSIS [None]
  - MULTIPLE DRUG OVERDOSE [None]
  - OEDEMA PERIPHERAL [None]
  - PERITONITIS [None]
  - PLATELET COUNT DECREASED [None]
  - PROTHROMBIN TIME PROLONGED [None]
  - PUPILLARY REFLEX IMPAIRED [None]
  - RESTLESSNESS [None]
  - TROPONIN INCREASED [None]
  - WHITE BLOOD CELL COUNT INCREASED [None]
